FAERS Safety Report 25461334 (Version 1)
Quarter: 2025Q2

REPORT INFORMATION
  Report Type: Spontaneous
  Country: ES (occurrence: ES)
  Receive Date: 20250620
  Receipt Date: 20250620
  Transmission Date: 20250716
  Serious: Yes (Hospitalization)
  Sender: MYLAN
  Company Number: ES-MYLANLABS-2025M1051279

PATIENT
  Age: 72 Year
  Sex: Female

DRUGS (20)
  1. AMIODARONE [Suspect]
     Active Substance: AMIODARONE
     Indication: Atrial fibrillation
  2. AMIODARONE [Suspect]
     Active Substance: AMIODARONE
     Route: 065
  3. AMIODARONE [Suspect]
     Active Substance: AMIODARONE
     Route: 065
  4. AMIODARONE [Suspect]
     Active Substance: AMIODARONE
  5. HEPARIN [Concomitant]
     Active Substance: HEPARIN SODIUM
     Indication: Anticoagulant therapy
  6. HEPARIN [Concomitant]
     Active Substance: HEPARIN SODIUM
     Route: 065
  7. HEPARIN [Concomitant]
     Active Substance: HEPARIN SODIUM
     Route: 065
  8. HEPARIN [Concomitant]
     Active Substance: HEPARIN SODIUM
  9. EDOXABAN [Concomitant]
     Active Substance: EDOXABAN
     Indication: Anticoagulant therapy
  10. EDOXABAN [Concomitant]
     Active Substance: EDOXABAN
     Route: 048
  11. EDOXABAN [Concomitant]
     Active Substance: EDOXABAN
     Route: 048
  12. EDOXABAN [Concomitant]
     Active Substance: EDOXABAN
  13. BIVALIRUDIN [Concomitant]
     Active Substance: BIVALIRUDIN
     Indication: Cardiac ablation
  14. BIVALIRUDIN [Concomitant]
     Active Substance: BIVALIRUDIN
  15. BIVALIRUDIN [Concomitant]
     Active Substance: BIVALIRUDIN
     Route: 042
  16. BIVALIRUDIN [Concomitant]
     Active Substance: BIVALIRUDIN
     Route: 042
  17. BIVALIRUDIN [Concomitant]
     Active Substance: BIVALIRUDIN
     Dosage: 1.75 MILLIGRAM/KILOGRAM, QH; INFUSION
  18. BIVALIRUDIN [Concomitant]
     Active Substance: BIVALIRUDIN
     Dosage: 1.75 MILLIGRAM/KILOGRAM, QH; INFUSION
  19. BIVALIRUDIN [Concomitant]
     Active Substance: BIVALIRUDIN
     Dosage: 1.75 MILLIGRAM/KILOGRAM, QH; INFUSION
     Route: 065
  20. BIVALIRUDIN [Concomitant]
     Active Substance: BIVALIRUDIN
     Dosage: 1.75 MILLIGRAM/KILOGRAM, QH; INFUSION
     Route: 065

REACTIONS (2)
  - Drug ineffective [Unknown]
  - Corneal deposits [Unknown]
